FAERS Safety Report 13645696 (Version 1)
Quarter: 2017Q2

REPORT INFORMATION
  Report Type: Spontaneous
  Country: DE (occurrence: DE)
  Receive Date: 20170613
  Receipt Date: 20170613
  Transmission Date: 20170830
  Serious: Yes (Other)
  Sender: FDA-Public Use
  Company Number: DE-ACCORD-052538

PATIENT
  Age: 38 Year
  Sex: Male

DRUGS (2)
  1. OLANZAPINE. [Suspect]
     Active Substance: OLANZAPINE
     Indication: PRODUCT USED FOR UNKNOWN INDICATION
     Dosage: FROM 10-FEB-2016 AT 10 MG,FROM 11-FEB-2016 AT 15 MG,FROM 12-FEB-2016 TO 25-APR-2016 AT 20MG
     Route: 048
     Dates: end: 20160425
  2. SERTRALINE [Suspect]
     Active Substance: SERTRALINE HYDROCHLORIDE
     Indication: PRODUCT USED FOR UNKNOWN INDICATION
     Dosage: 17-FEB TO 19-FEB:50 MG?20-FEB TO 21-FEB:75 MG?22-FEB TO 23-FEB:100 MG?24-FEB TO 25-FEB:125 MG
     Route: 048
     Dates: start: 20160217, end: 20160426

REACTIONS (1)
  - Erectile dysfunction [Not Recovered/Not Resolved]

NARRATIVE: CASE EVENT DATE: 20160320
